FAERS Safety Report 6189201-2 (Version None)
Quarter: 2009Q2

REPORT INFORMATION
  Report Type: 
  Country: None (occurrence: None)
  Receive Date: 20090513
  Receipt Date: 20090511
  Transmission Date: 20091009
  Serious: Yes (Other)
  Sender: FDA-Public Use
  Company Number: GB-WYE-G03465409

PATIENT
  Sex: Female
  Weight: 89.6 kg

DRUGS (4)
  1. EFFEXOR [Suspect]
     Indication: DEPRESSION
     Route: 048
     Dates: start: 20050714, end: 20051011
  2. TEMAZEPAM [Concomitant]
     Indication: INSOMNIA
     Dosage: 10 TO 20 MG AT NIGHT
     Route: 048
     Dates: start: 20050813, end: 20081009
  3. ZOPICLONE [Concomitant]
     Indication: INSOMNIA
     Route: 048
     Dates: start: 20051010
  4. ETHANOL [Suspect]
     Dosage: UNKNOWN

REACTIONS (1)
  - DISSOCIATIVE AMNESIA [None]
